FAERS Safety Report 5688487-8 (Version None)
Quarter: 2008Q1

REPORT INFORMATION
  Report Type: 
  Country: None (occurrence: None)
  Receive Date: 20080331
  Receipt Date: 20080325
  Transmission Date: 20080703
  Serious: Yes (Hospitalization)
  Sender: FDA-Public Use
  Company Number: FR-WYE-G00929208

PATIENT
  Sex: Male
  Weight: 65 kg

DRUGS (6)
  1. EFFEXOR [Suspect]
     Indication: DEPRESSION
     Route: 048
     Dates: start: 20060101, end: 20080121
  2. DI-ANTALVIC [Concomitant]
     Dosage: UNKNOWN
     Dates: start: 20071219, end: 20071219
  3. FOLIC ACID [Concomitant]
     Dosage: UNKNOWN
     Route: 048
     Dates: start: 20071001
  4. CYANOCOBALAMIN [Concomitant]
     Route: 058
     Dates: start: 20071001
  5. CISPLATIN [Concomitant]
     Indication: MESOTHELIOMA
     Dosage: 1 CYCLE EVERY 3 WK
     Dates: start: 20071009, end: 20071211
  6. ALIMTA [Suspect]
     Indication: MESOTHELIOMA
     Dosage: 1 CYCLE EVERY 3 WK;  CUMULATIVE DOSE TO EVENT: 4 CYCLE
     Route: 042
     Dates: start: 20071009, end: 20071211

REACTIONS (8)
  - ANTI-PLATELET ANTIBODY POSITIVE [None]
  - BLOOD FIBRINOGEN INCREASED [None]
  - EOSINOPHIL COUNT DECREASED [None]
  - FIBRIN D DIMER INCREASED [None]
  - HAEMOGLOBIN DECREASED [None]
  - HAPTOGLOBIN INCREASED [None]
  - LYMPHOCYTE COUNT DECREASED [None]
  - THROMBOCYTOPENIA [None]
